FAERS Safety Report 7014206-9 (Version None)
Quarter: 2010Q3

REPORT INFORMATION
  Report Type: 
  Country: None (occurrence: None)
  Receive Date: 20100927
  Receipt Date: 20100823
  Transmission Date: 20110219
  Serious: Yes (Hospitalization, Other)
  Sender: FDA-Public Use
  Company Number: US-BAYER-201016116NA

PATIENT
  Age: 51 Year
  Sex: Female

DRUGS (5)
  1. YASMIN [Suspect]
     Indication: DYSFUNCTIONAL UTERINE BLEEDING
     Route: 048
     Dates: start: 20060809, end: 20070405
  2. YAZ [Suspect]
     Indication: PRODUCT USED FOR UNKNOWN INDICATION
     Route: 048
  3. SYNTHROID [Concomitant]
     Dosage: TOTAL DAILY DOSE: 25 ?G
     Route: 048
  4. XANAX [Concomitant]
     Dosage: 0.5MG Q.12H.
     Route: 048
  5. NORVASC [Concomitant]
     Dosage: TOTAL DAILY DOSE: 5 MG
     Route: 048

REACTIONS (5)
  - DEEP VEIN THROMBOSIS [None]
  - DYSPNOEA [None]
  - OEDEMA PERIPHERAL [None]
  - PAIN IN EXTREMITY [None]
  - PULMONARY EMBOLISM [None]
